FAERS Safety Report 9919625 (Version 3)
Quarter: 2015Q2

REPORT INFORMATION
  Report Type: Spontaneous
  Country: US (occurrence: US)
  Receive Date: 20140224
  Receipt Date: 20150605
  Transmission Date: 20150821
  Serious: Yes (Hospitalization, Other)
  Sender: FDA-Public Use
  Company Number: US-BAYER-2014-027581

PATIENT
  Age: 36 Year
  Sex: Female
  Weight: 83.9 kg

DRUGS (5)
  1. CIPRO [Concomitant]
     Active Substance: CIPROFLOXACIN HYDROCHLORIDE
     Indication: SINUSITIS
     Dosage: 500 BID
  2. FLUCONAZOLE. [Concomitant]
     Active Substance: FLUCONAZOLE
     Dosage: TAKE ONE NOW AND REPEAT IN 3 DAYS
  3. PERCOCET [Concomitant]
     Active Substance: ACETAMINOPHEN\OXYCODONE HYDROCHLORIDE
  4. MIRENA [Suspect]
     Active Substance: LEVONORGESTREL
     Indication: CONTRACEPTION
     Dosage: 20 MCG/24HR, CONT
     Route: 015
     Dates: start: 200608, end: 20110221
  5. BORIC ACID [Concomitant]
     Active Substance: BORIC ACID
     Dosage: ONE PER VAGINA Q HS 1 MONTH
     Route: 067

REACTIONS (6)
  - Device dislocation [None]
  - Pelvic pain [None]
  - Abdominal pain upper [None]
  - Emotional distress [None]
  - Large intestine perforation [None]
  - Injury [None]

NARRATIVE: CASE EVENT DATE: 20110221
